FAERS Safety Report 10580522 (Version 2)
Quarter: 2017Q4

REPORT INFORMATION
  Report Type: Spontaneous
  Country: TR (occurrence: TR)
  Receive Date: 20141113
  Receipt Date: 20171018
  Transmission Date: 20180320
  Serious: Yes (Hospitalization)
  Sender: FDA-Public Use
  Company Number: TR-ACCORD-026994

PATIENT
  Age: 28 Year
  Sex: Male

DRUGS (5)
  1. METAMIZOLE SODIUM [Concomitant]
     Active Substance: METAMIZOLE SODIUM
     Dates: start: 201202
  2. ACETYLSALICYLIC ACID/CODEINE PHOSPHATE/PHENACETIN [Concomitant]
     Dates: start: 20120211
  3. SALBUTAMOL [Concomitant]
     Active Substance: ALBUTEROL
     Dates: start: 201202
  4. LACTULOSE. [Concomitant]
     Active Substance: LACTULOSE
     Dates: start: 20120212
  5. TRAMADOL/TRAMADOL HYDROCHLORIDE [Suspect]
     Active Substance: TRAMADOL HYDROCHLORIDE
     Indication: PAIN
     Dates: start: 201202

REACTIONS (1)
  - Mania [Recovered/Resolved]

NARRATIVE: CASE EVENT DATE: 201202
